FAERS Safety Report 15007964 (Version 7)
Quarter: 2019Q2

REPORT INFORMATION
  Report Type: Report from Study
  Country: None (occurrence: FR)
  Receive Date: 20180613
  Receipt Date: 20190531
  Transmission Date: 20190711
  Serious: Yes (Other)
  Sender: FDA-Public Use
  Company Number: FR-ABBVIE-18K-056-2385677-00

PATIENT
  Age: 66 Year
  Sex: Male

DRUGS (2)
  1. DUODOPA [Suspect]
     Active Substance: CARBIDOPA\LEVODOPA
     Indication: PARKINSON^S DISEASE
     Dosage: MD:5 ML,ED:3 ML,CFR(DURING THE DAY): 1.9  ML/H, DAY RHYTHM : 7 AM TO 10 PM
     Route: 050
     Dates: start: 20150513
  2. DUODOPA [Suspect]
     Active Substance: CARBIDOPA\LEVODOPA
     Dosage: MD 5ML; CONTINOUS FLOW RATE (DURING A DAY) 1.2ML/H; ED 3ML.
     Route: 050

REACTIONS (9)
  - Freezing phenomenon [Not Recovered/Not Resolved]
  - Off label use [Unknown]
  - Device occlusion [Unknown]
  - Balance disorder [Not Recovered/Not Resolved]
  - Polypectomy [Not Recovered/Not Resolved]
  - Incorrect route of product administration [Unknown]
  - Dyskinesia [Not Recovered/Not Resolved]
  - Fall [Not Recovered/Not Resolved]
  - Gait disturbance [Not Recovered/Not Resolved]

NARRATIVE: CASE EVENT DATE: 20180524
